FAERS Safety Report 10028819 (Version 2)
Quarter: 2014Q1

REPORT INFORMATION
  Report Type: Report from Study
  Country: DE (occurrence: DE)
  Receive Date: 20140321
  Receipt Date: 20140321
  Transmission Date: 20141002
  Serious: Yes (Hospitalization)
  Sender: FDA-Public Use
  Company Number: PHHO2012DE013535

PATIENT
  Age: 80 Year
  Sex: Female

DRUGS (7)
  1. ALISKIREN [Suspect]
     Indication: CARDIOVASCULAR DISORDER
     Dosage: UNK
     Route: 048
     Dates: start: 20111215
  2. ESIDREX [Suspect]
     Indication: CARDIOVASCULAR DISORDER
     Dosage: UNK
     Route: 048
     Dates: start: 20111215
  3. ASA [Concomitant]
  4. CARVEDILOL [Concomitant]
  5. CHLOROTHIAZIDE [Concomitant]
  6. JODTHYROX [Concomitant]
  7. RAMIPRIL [Concomitant]
     Dosage: 5 MG, UNK

REACTIONS (1)
  - Hyponatraemia [Unknown]
